FAERS Safety Report 22975416 (Version 2)
Quarter: 2023Q4

REPORT INFORMATION
  Report Type: Spontaneous
  Country: JP (occurrence: JP)
  Receive Date: 20230924
  Receipt Date: 20231128
  Transmission Date: 20240109
  Serious: Yes (Hospitalization)
  Sender: FDA-Public Use
  Company Number: JP-002147023-NVSJ2023JP013874

PATIENT
  Age: 80 Year
  Sex: Male
  Weight: 54 kg

DRUGS (2)
  1. GLYCOPYRRONIUM\INDACATEROL [Suspect]
     Active Substance: GLYCOPYRRONIUM\INDACATEROL
     Indication: Chronic obstructive pulmonary disease
     Dosage: UNK, QD
  2. VALSARTAN [Suspect]
     Active Substance: VALSARTAN
     Indication: Hypertension
     Dosage: 80 MG, QD
     Route: 048

REACTIONS (21)
  - Respiratory failure [Recovering/Resolving]
  - Dyspnoea [Recovering/Resolving]
  - Oxygen saturation decreased [Unknown]
  - Depressed level of consciousness [Unknown]
  - Respiratory acidosis [Unknown]
  - Hypoventilation [Unknown]
  - Stupor [Recovering/Resolving]
  - Amyotrophic lateral sclerosis [Unknown]
  - Peripheral swelling [Unknown]
  - Musculoskeletal stiffness [Unknown]
  - Arthralgia [Unknown]
  - Oedema [Unknown]
  - Diaphragmatic disorder [Unknown]
  - Muscle atrophy [Unknown]
  - Muscular weakness [Unknown]
  - Weight decreased [Unknown]
  - Muscle contractions involuntary [Unknown]
  - Antimitochondrial antibody positive [Unknown]
  - Atrioventricular block first degree [Unknown]
  - Sleep apnoea syndrome [Unknown]
  - General physical health deterioration [Unknown]

NARRATIVE: CASE EVENT DATE: 20230408
